FAERS Safety Report 5634156-X (Version None)
Quarter: 2008Q1

REPORT INFORMATION
  Report Type: 
  Country: None (occurrence: None)
  Receive Date: 20080131
  Receipt Date: 20070103
  Transmission Date: 20080703
  Serious: Yes (Other)
  Sender: FDA-Public Use
  Company Number: 151450USA

PATIENT
  Sex: Female

DRUGS (6)
  1. COPAXONE [Suspect]
     Indication: MULTIPLE SCLEROSIS
     Dosage: 20 MG (20 MG, 1 IN 1 D), SUBCUTANEOUS
     Route: 058
     Dates: start: 20010301
  2. GABAPENTIN [Concomitant]
  3. ATROPINE [Concomitant]
  4. BACLOFEN [Concomitant]
  5. MODAFINIL [Concomitant]
  6. ^ARSITEK^ [Concomitant]

REACTIONS (5)
  - INCORRECT ROUTE OF DRUG ADMINISTRATION [None]
  - INJECTION SITE IRRITATION [None]
  - INJECTION SITE PHLEBITIS [None]
  - INJECTION SITE SCAR [None]
  - INJECTION SITE ULCER [None]
